FAERS Safety Report 6790967-9 (Version None)
Quarter: 2010Q2

REPORT INFORMATION
  Report Type: 
  Country: None (occurrence: None)
  Receive Date: 20100624
  Receipt Date: 20100617
  Transmission Date: 20101027
  Serious: Yes (Life-Threatening, Disabling)
  Sender: FDA-Public Use
  Company Number: US-MERCK-1006USA03006

PATIENT

DRUGS (2)
  1. IVEMEND [Suspect]
     Indication: PROPHYLAXIS OF NAUSEA AND VOMITING
     Route: 041
  2. ANTINEOPLASTIC (UNSPECIFIED) [Concomitant]
     Indication: CHEMOTHERAPY
     Route: 065

REACTIONS (1)
  - ADVERSE EVENT [None]
